FAERS Safety Report 4310849-1 (Version None)
Quarter: 2004Q1

REPORT INFORMATION
  Report Type: 
  Country: None (occurrence: None)
  Receive Date: 20040302
  Receipt Date: 20040219
  Transmission Date: 20041129
  Serious: Yes (Hospitalization)
  Sender: FDA-Public Use
  Company Number: 2004200335AU

PATIENT
  Age: 58 Year
  Sex: Male
  Weight: 80 kg

DRUGS (5)
  1. CELEBREX [Suspect]
     Indication: BACK PAIN
     Dosage: 200 MG, BID
     Dates: start: 20040103
  2. INDAPAMIDE [Concomitant]
  3. PERINOPRIL ERBUMINE [Concomitant]
  4. DIABEX [Concomitant]
  5. DILATREND [Concomitant]

REACTIONS (2)
  - LUNG DISORDER [None]
  - RENAL FAILURE ACUTE [None]
